FAERS Safety Report 9224955 (Version 2)
Quarter: 2013Q3

REPORT INFORMATION
  Report Type: Spontaneous
  Country: US (occurrence: US)
  Receive Date: 20130411
  Receipt Date: 20130711
  Transmission Date: 20140515
  Serious: No
  Sender: FDA-Public Use
  Company Number: US-BRISTOL-MYERS SQUIBB COMPANY-17364548

PATIENT
  Age: 67 Year
  Sex: Female

DRUGS (21)
  1. NULOJIX [Suspect]
     Indication: RENAL TRANSPLANT
     Dosage: 10 MG/KG THROUGH 28JAN13 THEN 5MG/KG PER MONTH
     Route: 042
  2. ACETYLSALICYLIC ACID [Concomitant]
     Dates: start: 20120914
  3. ACETAMINOPHEN [Concomitant]
  4. AMLODIPINE [Concomitant]
     Dates: start: 20120917
  5. BUPROPION [Concomitant]
     Dates: start: 20120706
  6. CARBAMAZEPINE [Concomitant]
     Dates: start: 20120918
  7. FAMOTIDINE [Concomitant]
     Dates: start: 20121231
  8. FERROUS SULFATE [Concomitant]
     Dates: start: 20121231
  9. FLUTICASONE [Concomitant]
     Route: 045
     Dates: start: 20120918
  10. BACTRIM [Concomitant]
     Dates: start: 20120914
  11. TRAZODONE HCL [Concomitant]
     Dates: start: 20121229
  12. PREDNISONE [Concomitant]
     Dates: start: 20120914
  13. FLOXIN [Concomitant]
     Dates: start: 20120910
  14. MULTIVITAMIN [Concomitant]
     Dates: start: 20120914
  15. METHYLPREDNISONE [Concomitant]
     Dates: start: 20130225
  16. MYFORTIC [Concomitant]
     Dosage: 720 BID 14SEP12-27OCT12; 360 MG BID 27OCT12-5NOV12, 180 MG BID 5NOV12-
     Dates: start: 20120914
  17. TRAMADOL [Concomitant]
     Dates: start: 20121217
  18. VALCYTE [Concomitant]
     Dosage: 900 17SE12-31OCT12, 450 31OCT12-3DEC12, 900 3DEC12-7DEC12, 450 17DEC12
     Dates: start: 20120917
  19. BRIMONIDINE [Concomitant]
     Route: 047
     Dates: start: 20120914
  20. BRINZOLAMIDE [Concomitant]
     Route: 047
     Dates: start: 20120809
  21. LATANOPROST [Concomitant]
     Route: 047
     Dates: start: 20120914

REACTIONS (2)
  - Night sweats [Not Recovered/Not Resolved]
  - Hyperhidrosis [Unknown]
